FAERS Safety Report 5933161-3 (Version None)
Quarter: 2008Q4

REPORT INFORMATION
  Report Type: 
  Country: None (occurrence: None)
  Receive Date: 20081028
  Receipt Date: 20081017
  Transmission Date: 20090506
  Serious: Yes (Hospitalization)
  Sender: FDA-Public Use
  Company Number: TR-TYCO HEALTHCARE/MALLINCKRODT-T200801717

PATIENT

DRUGS (5)
  1. METHYLIN [Suspect]
     Indication: ATTENTION DEFICIT/HYPERACTIVITY DISORDER
     Dosage: 15 MG, QD
  2. METHYLIN [Suspect]
     Indication: BORDERLINE MENTAL IMPAIRMENT
  3. RISPERIDONE [Suspect]
     Indication: OPPOSITIONAL DEFIANT DISORDER
     Dosage: 1 MG, QD
  4. RISPERIDONE [Suspect]
     Indication: LEARNING DISORDER
  5. RISPERIDONE [Suspect]
     Indication: PSYCHOMOTOR HYPERACTIVITY

REACTIONS (1)
  - MANIA [None]
